FAERS Safety Report 4680680-6 (Version None)
Quarter: 2005Q2

REPORT INFORMATION
  Report Type: 
  Country: None (occurrence: None)
  Receive Date: 20050603
  Receipt Date: 20050112
  Transmission Date: 20051028
  Serious: Yes (Other)
  Sender: FDA-Public Use
  Company Number: 2005CG00108

PATIENT
  Age: 683 Month
  Sex: Female
  Weight: 65 kg

DRUGS (2)
  1. NOLVADEX [Suspect]
     Indication: BREAST CANCER
     Route: 048
     Dates: start: 20041001, end: 20041201
  2. ARIMIDEX [Concomitant]
     Indication: BREAST CANCER
     Route: 048
     Dates: start: 20040101, end: 20041001

REACTIONS (2)
  - DIPLEGIA [None]
  - PARAESTHESIA [None]
